FAERS Safety Report 13279945 (Version 1)
Quarter: 2017Q1

REPORT INFORMATION
  Report Type: Spontaneous
  Country: US (occurrence: US)
  Receive Date: 20170228
  Receipt Date: 20170228
  Transmission Date: 20170428
  Serious: Yes (Disabling)
  Sender: FDA-Public Use
  Company Number: None

PATIENT
  Age: 12 Year
  Sex: Male
  Weight: 31.5 kg

DRUGS (1)
  1. MIRALAX [Suspect]
     Active Substance: POLYETHYLENE GLYCOL 3350
     Indication: CONSTIPATION
     Dates: start: 20070207, end: 20170214

REACTIONS (4)
  - Psychiatric symptom [None]
  - Mood swings [None]
  - Aggression [None]
  - Abnormal behaviour [None]

NARRATIVE: CASE EVENT DATE: 20160816
